FAERS Safety Report 9275891 (Version 3)
Quarter: 2013Q2

REPORT INFORMATION
  Report Type: Report from Study
  Country: DE (occurrence: DE)
  Receive Date: 20130507
  Receipt Date: 20130620
  Transmission Date: 20140414
  Serious: Yes (Hospitalization)
  Sender: FDA-Public Use
  Company Number: DE-SANOFI-AVENTIS-2013SA002472

PATIENT
  Age: 83 Year
  Sex: Male
  Weight: 74 kg

DRUGS (10)
  1. JEVTANA [Suspect]
     Indication: HORMONE-REFRACTORY PROSTATE CANCER
     Route: 051
     Dates: start: 2012, end: 2012
  2. JEVTANA [Suspect]
     Indication: HORMONE-REFRACTORY PROSTATE CANCER
     Route: 051
     Dates: start: 20121220, end: 20121220
  3. PREDNISOLONE [Concomitant]
     Indication: PREMEDICATION
  4. GRANISETRON [Concomitant]
  5. DEXAMETHASONE [Concomitant]
  6. ZOMETA [Concomitant]
  7. RAMIPRIL [Concomitant]
  8. ACETYLSALICYLIC ACID [Concomitant]
  9. DIGITOXIN [Concomitant]
  10. HYDROCHLOROTHIAZIDE [Concomitant]

REACTIONS (5)
  - Cardiac arrest [Recovered/Resolved]
  - Anaemia [Recovered/Resolved]
  - Syncope [Recovered/Resolved]
  - Fatigue [Recovered/Resolved]
  - General physical health deterioration [Unknown]
